FAERS Safety Report 9401145 (Version 10)
Quarter: 2016Q2

REPORT INFORMATION
  Report Type: Spontaneous
  Country: US (occurrence: US)
  Receive Date: 20130715
  Receipt Date: 20160614
  Transmission Date: 20160815
  Serious: No
  Sender: FDA-Public Use
  Company Number: US-PFIZER INC-2013201674

PATIENT
  Age: 67 Year
  Sex: Female
  Weight: 60.78 kg

DRUGS (39)
  1. BIOTIN [Concomitant]
     Active Substance: BIOTIN
     Indication: SLEEP DISORDER
     Dosage: 10000 UG, 1X/DAY (10 K MCG ONE PER DAY)
  2. XELJANZ [Concomitant]
     Active Substance: TOFACITINIB CITRATE
     Indication: OSTEOPOROSIS
     Dosage: UNK
  3. LYRICA [Suspect]
     Active Substance: PREGABALIN
     Indication: AXONAL NEUROPATHY
     Dosage: 50 MG, DAILY
     Route: 048
     Dates: start: 20150921
  4. LYRICA [Suspect]
     Active Substance: PREGABALIN
     Indication: NEURALGIA
     Dosage: 25 MG, 1X/DAY
     Route: 048
  5. LYRICA [Suspect]
     Active Substance: PREGABALIN
     Dosage: 50 MG, ALTERNATE DAY
  6. CALCITONIN, SALMON [Concomitant]
     Active Substance: CALCITONIN SALMON
     Dosage: UNK
     Dates: start: 2015, end: 201510
  7. MAGNESIUM CITRATE. [Concomitant]
     Active Substance: MAGNESIUM CITRATE
     Dosage: 600 MG, DAILY
  8. VITAMIN C [Concomitant]
     Active Substance: ASCORBIC ACID
     Dosage: 500 MG, 2X/DAY
  9. LYRICA [Suspect]
     Active Substance: PREGABALIN
     Dosage: 25 MG, WEEKLY
     Route: 048
     Dates: end: 20151117
  10. PROMETRIUM [Concomitant]
     Active Substance: PROGESTERONE
     Indication: ALOPECIA
  11. ALEVE [Concomitant]
     Active Substance: NAPROXEN SODIUM
     Dosage: 220 MG, AS NEEDED
  12. CALCIUM CITRATE [Concomitant]
     Active Substance: CALCIUM CITRATE
     Dosage: 1200 MG, DAILY
  13. QUERCETIN [Concomitant]
     Active Substance: QUERCETIN
     Indication: VASCULAR FRAGILITY
     Dosage: 1200 MG, DAILY
  14. RESVERATROL [Concomitant]
     Active Substance: RESVERATROL
     Indication: VASCULAR FRAGILITY
     Dosage: UNK
  15. ZANTAC [Concomitant]
     Active Substance: RANITIDINE HYDROCHLORIDE
     Dosage: 150 MG, AS NEEDED (1SO MG TABLET 1 TABLET PRN)
  16. LYRICA [Suspect]
     Active Substance: PREGABALIN
     Dosage: UNK (GREATER THAN 50 MG PER DAY)
     Route: 048
  17. LYRICA [Suspect]
     Active Substance: PREGABALIN
     Dosage: 25 MG, 1X/DAY
  18. DIFLUCAN [Concomitant]
     Active Substance: FLUCONAZOLE
     Indication: FLUID RETENTION
     Dosage: 200 MG, 1X/DAY
     Dates: start: 2008
  19. BENICAR HCT [Concomitant]
     Active Substance: HYDROCHLOROTHIAZIDE\OLMESARTAN MEDOXOMIL
     Dosage: 1 DF, 1X/DAY (HYDROCHLOROTHIAZIDE 12.5 MG, OLMESARTAN MEDOXOMIL 20 MG)
     Dates: start: 2007
  20. 5 HTP [Concomitant]
     Indication: DEPRESSION
     Dosage: 100 MG, 1X/DAY
  21. CHOLESTYRAMINE. [Concomitant]
     Active Substance: CHOLESTYRAMINE
     Dosage: UNK
     Dates: start: 201410, end: 201501
  22. VOLTAREN [Concomitant]
     Active Substance: DICLOFENAC SODIUM
     Dosage: 1 %, UNK
  23. MAGNESIUM [Concomitant]
     Active Substance: MAGNESIUM
     Dosage: 400 MG, DAILY
  24. BOSWELLIA COMPLEX [Concomitant]
     Indication: INFLAMMATION
     Dosage: 230 MG, 3X/DAY
  25. RESVERATROL [Concomitant]
     Active Substance: RESVERATROL
     Indication: ANTIOXIDANT THERAPY
  26. VITAMIN D3 [Concomitant]
     Active Substance: CHOLECALCIFEROL
     Dosage: 50000 IU, EVERY 2 WEEKS
  27. QUERCETIN [Concomitant]
     Active Substance: QUERCETIN
     Indication: ANTIOXIDANT THERAPY
  28. PROBIOTICS [Concomitant]
     Active Substance: PROBIOTICS NOS
     Dosage: UNK
  29. ZYRTEC [Concomitant]
     Active Substance: CETIRIZINE HYDROCHLORIDE
     Dosage: 10 MG, AS NEEDED
  30. LIBRIUM [Concomitant]
     Active Substance: CHLORDIAZEPOXIDE HYDROCHLORIDE
     Dosage: 10 MG, 1X/DAY
     Dates: start: 2000
  31. PROMETRIUM [Concomitant]
     Active Substance: PROGESTERONE
     Indication: HOT FLUSH
     Dosage: 100 MG, 1X/DAY
     Dates: start: 2000
  32. VITAMIN D3 [Concomitant]
     Active Substance: CHOLECALCIFEROL
     Dosage: 5 DF, DAILY (5K PER DAY)
  33. NIACIN. [Concomitant]
     Active Substance: NIACIN
     Dosage: 50 MG, 1X/DAY
  34. ASPIRIN /00002701/ [Concomitant]
     Active Substance: ASPIRIN
  35. LYRICA [Suspect]
     Active Substance: PREGABALIN
     Indication: NEUROPATHY PERIPHERAL
     Dosage: 25 MG, 1X/DAY (QD) (AT NIGHT)
     Route: 048
  36. FLUCONAZOLE. [Concomitant]
     Active Substance: FLUCONAZOLE
     Dosage: UNK
     Dates: start: 2008
  37. SYNTHROID [Concomitant]
     Active Substance: LEVOTHYROXINE SODIUM
     Dosage: 25 UG, 1X/DAY
  38. GLUCOSAMINE [Concomitant]
     Active Substance: GLUCOSAMINE
     Dosage: 2.1 G, DAILY (1.05 G 2 TBS DAILY)
  39. POTASSIUM [Concomitant]
     Active Substance: POTASSIUM
     Indication: BLOOD POTASSIUM ABNORMAL
     Dosage: 400 MG, 4X/DAY

REACTIONS (17)
  - Peripheral swelling [Unknown]
  - Pain in extremity [Not Recovered/Not Resolved]
  - Swelling face [Recovering/Resolving]
  - Condition aggravated [Not Recovered/Not Resolved]
  - Fluid retention [Unknown]
  - Diarrhoea [Unknown]
  - Intentional product use issue [Unknown]
  - Musculoskeletal chest pain [Unknown]
  - Painful respiration [Unknown]
  - Pulmonary mass [Unknown]
  - Drug tolerance [Unknown]
  - Drug ineffective for unapproved indication [Not Recovered/Not Resolved]
  - Eyelid oedema [Unknown]
  - Joint swelling [Unknown]
  - Headache [Not Recovered/Not Resolved]
  - Visual impairment [Unknown]
  - Bone density increased [Unknown]

NARRATIVE: CASE EVENT DATE: 2015
